FAERS Safety Report 14482808 (Version 4)
Quarter: 2018Q4

REPORT INFORMATION
  Report Type: Other
  Country: DE (occurrence: DE)
  Receive Date: 20180203
  Receipt Date: 20181011
  Transmission Date: 20190204
  Serious: Yes (Other)
  Sender: FDA-Public Use
  Company Number: DE-MACLEODS PHARMACEUTICALS US LTD-MAC2018009159

PATIENT

DRUGS (14)
  1. TORASEMID [Concomitant]
     Active Substance: TORSEMIDE
     Indication: OEDEMA
     Dosage: 10 MG, BID, 20 MG MILLIGRAM(S) EVERY DAY
     Route: 048
     Dates: start: 201701
  2. DEKRISTOL [Concomitant]
     Active Substance: CHOLECALCIFEROL
     Indication: VITAMIN D DEFICIENCY
     Dosage: 20000 IU, EVERY 2 WEEK
     Route: 048
     Dates: start: 20151122
  3. TEA, GREEN [Concomitant]
     Active Substance: GREEN TEA LEAF
     Indication: AMYLOIDOSIS
     Dosage: 4 DF, QD
     Route: 065
  4. BISOPROLOL [Concomitant]
     Active Substance: BISOPROLOL
     Indication: HYPERTENSION
     Dosage: 7.5 MG, QD
     Route: 048
     Dates: start: 20160616
  5. ASPIRIN. [Interacting]
     Active Substance: ASPIRIN
     Indication: CORONARY ARTERY DISEASE
     Dosage: 100 MG, QD, TABLET
     Route: 048
     Dates: start: 20160613, end: 20170719
  6. SPIRONOLACTONE. [Concomitant]
     Active Substance: SPIRONOLACTONE
     Indication: OEDEMA
     Dosage: 50 MG, BID ( (100 MG MILLIGRAM(S) EVERY DAY))
     Route: 048
     Dates: start: 20161129
  7. DABIGATRAN [Interacting]
     Active Substance: DABIGATRAN
     Indication: ATRIAL FIBRILLATION
     Dosage: 220 MG, QD, (110 MG, BID)
     Route: 048
     Dates: start: 201701
  8. POTASSIUM CHLORIDE. [Concomitant]
     Active Substance: POTASSIUM CHLORIDE
     Indication: HYPOKALAEMIA
     Dosage: 1200 MILLIGRAM, TID, EVERY 8 HOUR
     Route: 048
     Dates: start: 20161129
  9. CAMELLIA SINENSIS [Concomitant]
     Active Substance: GREEN TEA LEAF
     Indication: AMYLOIDOSIS
     Dosage: 1 DF, QD, DAILY DOSE: 4 DF DOSAGE FORM EVERY DAY
     Route: 048
  10. KALIUMCHLORID [Concomitant]
     Active Substance: POTASSIUM CHLORIDE
     Indication: HYPOKALAEMIA
     Dosage: 1200 MG, UNK, EVERY 8 HOURS
     Route: 048
     Dates: start: 20161129
  11. CLOPIDOGREL [Suspect]
     Active Substance: CLOPIDOGREL BISULFATE
     Indication: CORONARY ARTERY DISEASE
     Dosage: 75 MILLIGRAM, QD
     Route: 048
     Dates: start: 20160613, end: 20170719
  12. MEGLUMINE [Suspect]
     Active Substance: MEGLUMINE
     Indication: AMYLOIDOSIS
     Dosage: UNK, QD, DOSE: 20 OR 80 MG (1XDAY)
     Route: 065
     Dates: start: 20170704
  13. ALLOPURINOL. [Concomitant]
     Active Substance: ALLOPURINOL
     Indication: BLOOD URIC ACID INCREASED
     Dosage: 100 MG, QD
     Route: 048
     Dates: start: 20151118
  14. MAGNESIUM [Concomitant]
     Active Substance: MAGNESIUM
     Indication: MAGNESIUM DEFICIENCY
     Dosage: 300 MG, BID ((600 MG MILLIGRAM(S) EVERY DAY))
     Route: 048
     Dates: start: 20170101

REACTIONS (4)
  - Haemorrhagic diathesis [Recovered/Resolved]
  - Labelled drug-drug interaction medication error [Unknown]
  - Product administration error [Unknown]
  - Bleeding time prolonged [Recovered/Resolved]

NARRATIVE: CASE EVENT DATE: 20170717
